FAERS Safety Report 22624863 (Version 1)
Quarter: 2023Q2

REPORT INFORMATION
  Report Type: Spontaneous
  Country: US (occurrence: None)
  Receive Date: 20230616
  Receipt Date: 20230616
  Transmission Date: 20230721
  Serious: Yes (Hospitalization)
  Sender: FDA-Public Use
  Company Number: None

PATIENT
  Age: 66 Year
  Sex: Female
  Weight: 56.25 kg

DRUGS (15)
  1. SOFOSBUVIR\VELPATASVIR [Suspect]
     Active Substance: SOFOSBUVIR\VELPATASVIR
     Indication: Chronic hepatitis C
     Dosage: OTHER QUANTITY : 400/100 MG;?FREQUENCY : DAILY;?
     Route: 048
     Dates: end: 20230601
  2. ALEVE [Concomitant]
     Active Substance: NAPROXEN SODIUM
  3. VITAMIN D [Concomitant]
     Active Substance: VITAMIN D NOS
  4. ELIQUIS [Concomitant]
     Active Substance: APIXABAN
  5. NITROGLYCERIN [Concomitant]
     Active Substance: NITROGLYCERIN
  6. TRAMADOL [Concomitant]
     Active Substance: TRAMADOL
  7. TRAZODONE [Concomitant]
     Active Substance: TRAZODONE HYDROCHLORIDE
  8. TYLENOL [Concomitant]
     Active Substance: ACETAMINOPHEN
  9. ALPRAZOLAM [Concomitant]
     Active Substance: ALPRAZOLAM
  10. ATORVASTATIN [Concomitant]
     Active Substance: ATORVASTATIN
  11. DIVALPROEX SODIUM [Concomitant]
     Active Substance: DIVALPROEX SODIUM
  12. DULOXETINE [Concomitant]
     Active Substance: DULOXETINE
  13. ESCITALOPRAM [Concomitant]
     Active Substance: ESCITALOPRAM OXALATE
  14. LEVETIRACETAM [Concomitant]
     Active Substance: LEVETIRACETAM
  15. METOPROLOL SUCCINATE [Concomitant]
     Active Substance: METOPROLOL SUCCINATE

REACTIONS (3)
  - Encephalopathy [None]
  - Therapy cessation [None]
  - Adverse drug reaction [None]
